FAERS Safety Report 6296795-5 (Version None)
Quarter: 2009Q3

REPORT INFORMATION
  Report Type: 
  Country: None (occurrence: None)
  Receive Date: 20090804
  Receipt Date: 20090722
  Transmission Date: 20100115
  Serious: Yes (Death, Hospitalization, Other)
  Sender: FDA-Public Use
  Company Number: PR-ROCHE-645624

PATIENT
  Age: 32 Year
  Sex: Male

DRUGS (11)
  1. TRETINOIN [Suspect]
     Indication: ACUTE PROMYELOCYTIC LEUKAEMIA
     Route: 048
  2. TRETINOIN [Suspect]
     Route: 048
  3. DAUNORUBICIN HCL [Suspect]
     Indication: ACUTE PROMYELOCYTIC LEUKAEMIA
     Dosage: FOR THREE DAYS
     Route: 042
  4. DAUNORUBICIN HCL [Suspect]
     Dosage: 3 CONSOLIDATION CHEMOTHERAPIES
     Route: 042
  5. CYTARABINE [Suspect]
     Indication: ACUTE PROMYELOCYTIC LEUKAEMIA
     Dosage: CONTINOUS INFUSION
     Route: 042
  6. CYTARABINE [Suspect]
     Route: 042
  7. CYTARABINE [Suspect]
     Dosage: CONSOLIDATION THERAPY
     Route: 042
  8. MERCAPTOPURINE [Suspect]
     Indication: ACUTE PROMYELOCYTIC LEUKAEMIA
     Route: 065
  9. METHOTREXATE [Suspect]
     Indication: ACUTE PROMYELOCYTIC LEUKAEMIA
     Route: 065
  10. MITOXANTRONE [Suspect]
     Route: 065
  11. MITOXANTRONE [Suspect]
     Route: 065

REACTIONS (4)
  - ACUTE MYELOID LEUKAEMIA [None]
  - ACUTE MYELOID LEUKAEMIA RECURRENT [None]
  - MALIGNANT NEOPLASM PROGRESSION [None]
  - OSTEOMYELITIS [None]
